FAERS Safety Report 6662943-8 (Version None)
Quarter: 2010Q2

REPORT INFORMATION
  Report Type: 
  Country: None (occurrence: None)
  Receive Date: 20100401
  Receipt Date: 20100330
  Transmission Date: 20101027
  Serious: Yes (Hospitalization, Other)
  Sender: FDA-Public Use
  Company Number: FR-TEVA-227895ISR

PATIENT
  Age: 38 Year
  Sex: Male

DRUGS (1)
  1. AMOXICILLIN [Suspect]
     Indication: NASOPHARYNGITIS

REACTIONS (3)
  - BONE MARROW FAILURE [None]
  - NEUTROPENIC INFECTION [None]
  - SEPTIC SHOCK [None]
